FAERS Safety Report 7197156-7 (Version None)
Quarter: 2010Q4

REPORT INFORMATION
  Report Type: 
  Country: None (occurrence: None)
  Receive Date: 20101224
  Receipt Date: 20101220
  Transmission Date: 20110411
  Serious: Yes (Death)
  Sender: FDA-Public Use
  Company Number: PHHY2010IN87086

PATIENT
  Sex: Female

DRUGS (1)
  1. FEMARA [Suspect]
     Dosage: 2.5 MG, QD

REACTIONS (1)
  - DEATH [None]
